FAERS Safety Report 18361884 (Version 1)
Quarter: 2020Q4

REPORT INFORMATION
  Report Type: Spontaneous
  Country: CN (occurrence: CN)
  Receive Date: 20201008
  Receipt Date: 20201008
  Transmission Date: 20210114
  Serious: Yes (Death)
  Sender: FDA-Public Use
  Company Number: CN-FRESENIUS KABI-FK202010404

PATIENT
  Age: 40 Year
  Sex: Male

DRUGS (2)
  1. METHYLPREDNISOLONE (MANUFACTURER UNKNOWN) [Suspect]
     Active Substance: METHYLPREDNISOLONE
     Indication: DEMYELINATION
     Route: 065
     Dates: start: 20160426, end: 201605
  2. PREDNISONE. [Suspect]
     Active Substance: PREDNISONE
     Indication: DEMYELINATION
     Dosage: TAPERED BY 5MG EVERY WEEK
     Route: 048
     Dates: start: 20160519, end: 2016

REACTIONS (3)
  - Neurocryptococcosis [Fatal]
  - Disease progression [Fatal]
  - Infection masked [Fatal]
